FAERS Safety Report 11176308 (Version 2)
Quarter: 2015Q3

REPORT INFORMATION
  Report Type: Spontaneous
  Country: BR (occurrence: BR)
  Receive Date: 20150610
  Receipt Date: 20150706
  Transmission Date: 20151125
  Serious: Yes (Life-Threatening, Hospitalization, Other)
  Sender: FDA-Public Use
  Company Number: PHHY2015BR068730

PATIENT
  Sex: Female

DRUGS (1)
  1. VOLTAREN [Suspect]
     Active Substance: DICLOFENAC SODIUM
     Indication: MYALGIA
     Dosage: UNK
     Route: 065
     Dates: start: 20141124

REACTIONS (24)
  - Nerve injury [Unknown]
  - Impaired healing [Unknown]
  - Emotional disorder [Unknown]
  - Diabetes mellitus [Unknown]
  - Feeling abnormal [Unknown]
  - Injection site necrosis [Unknown]
  - Product contamination microbial [Unknown]
  - Musculoskeletal pain [Unknown]
  - Wound [Unknown]
  - Skin atrophy [Unknown]
  - Erythema [Unknown]
  - Embolism [Unknown]
  - Glaucoma [Unknown]
  - Scar [Unknown]
  - Infection [Unknown]
  - Lipoatrophy [Unknown]
  - Pyrexia [Unknown]
  - Application site pain [Unknown]
  - Fear [Unknown]
  - Wrong technique in product usage process [Unknown]
  - Eschar [Unknown]
  - Injection site abscess [Unknown]
  - Injection site extravasation [Unknown]
  - Obesity [Unknown]
